FAERS Safety Report 10029314 (Version 2)
Quarter: 2014Q1

REPORT INFORMATION
  Report Type: Report from Study
  Country: US (occurrence: US)
  Receive Date: 20140321
  Receipt Date: 20140321
  Transmission Date: 20141002
  Serious: Yes (Other)
  Sender: FDA-Public Use
  Company Number: PHEH2013US020895

PATIENT
  Age: 51 Year
  Sex: Female
  Weight: 73.71 kg

DRUGS (8)
  1. GILENYA [Suspect]
     Indication: MULTIPLE SCLEROSIS
     Dosage: 0.5 MG, QD
     Route: 048
     Dates: start: 20130925, end: 20131004
  2. PREMARIN [Concomitant]
     Indication: MENOPAUSE
     Dosage: 1.25 MG, QD
     Route: 048
     Dates: start: 20090121
  3. BACLOFEN [Concomitant]
     Indication: MUSCLE SPASMS
     Dosage: 20 MG, TID
     Route: 048
  4. RITALIN [Concomitant]
     Indication: FATIGUE
     Dosage: 30 MG, TID
     Route: 048
  5. PROZAC [Concomitant]
     Indication: DEPRESSION
     Dosage: 40 MG, QD
     Route: 048
  6. KLONOPIN [Concomitant]
     Dosage: 0.5 MG, UNK
     Route: 048
     Dates: start: 20090430
  7. NEURONTIN [Concomitant]
     Dosage: 300 MG, TID
     Route: 048
  8. IBUPROFEN [Concomitant]
     Dosage: 200 MG, PRN
     Route: 048

REACTIONS (16)
  - Chest pain [Recovered/Resolved]
  - Bradycardia [Recovered/Resolved]
  - Dyspnoea [Recovered/Resolved]
  - Back pain [Recovered/Resolved]
  - Dizziness [Recovered/Resolved]
  - Chest discomfort [Unknown]
  - Pain [Unknown]
  - Pain in extremity [Unknown]
  - Oesophageal spasm [Unknown]
  - Musculoskeletal pain [Unknown]
  - Micturition urgency [Unknown]
  - Neutrophil percentage increased [Unknown]
  - Nervousness [Not Recovered/Not Resolved]
  - Malaise [Not Recovered/Not Resolved]
  - Vision blurred [Recovering/Resolving]
  - Lymphocyte count decreased [Unknown]
